FAERS Safety Report 13601663 (Version 1)
Quarter: 2017Q2

REPORT INFORMATION
  Report Type: Spontaneous
  Country: US (occurrence: US)
  Receive Date: 20170601
  Receipt Date: 20170601
  Transmission Date: 20170830
  Serious: No
  Sender: FDA-Public Use
  Company Number: US-BAUSCH-BL-2016-013642

PATIENT
  Age: 82 Year
  Sex: Female
  Weight: 69.92 kg

DRUGS (5)
  1. AMLODIPINE [Concomitant]
     Active Substance: AMLODIPINE BESYLATE
     Indication: CARDIAC DISORDER
     Route: 048
  2. ELIDEL [Suspect]
     Active Substance: PIMECROLIMUS
     Indication: ECZEMA
     Route: 061
     Dates: start: 201605
  3. ISOSORBIDE. [Concomitant]
     Active Substance: ISOSORBIDE
     Indication: CARDIAC DISORDER
     Route: 048
  4. LIALDA [Concomitant]
     Active Substance: MESALAMINE
     Indication: COLITIS
     Route: 048
  5. LEVOTHYROXINE. [Concomitant]
     Active Substance: LEVOTHYROXINE
     Indication: HYPOTHYROIDISM
     Route: 048

REACTIONS (1)
  - Application site dryness [Recovering/Resolving]

NARRATIVE: CASE EVENT DATE: 2016
